FAERS Safety Report 5449423-2 (Version None)
Quarter: 2007Q3

REPORT INFORMATION
  Report Type: 
  Country: None (occurrence: None)
  Receive Date: 20070911
  Receipt Date: 20070830
  Transmission Date: 20080115
  Serious: Yes (Other)
  Sender: FDA-Public Use
  Company Number: AU-PFIZER INC-2007073641

PATIENT
  Age: 45 Year
  Sex: Female

DRUGS (2)
  1. ZELDOX (CAPSULES) [Suspect]
  2. ALL OTHER THERAPEUTIC PRODUCTS [Concomitant]

REACTIONS (3)
  - BREAST ENGORGEMENT [None]
  - GALACTORRHOEA [None]
  - MENSTRUATION IRREGULAR [None]
